FAERS Safety Report 7825668-9 (Version None)
Quarter: 2011Q4

REPORT INFORMATION
  Report Type: 
  Country: None (occurrence: None)
  Receive Date: 20111019
  Receipt Date: 20111005
  Transmission Date: 20120403
  Serious: Yes (Other)
  Sender: FDA-Public Use
  Company Number: CH-ELI_LILLY_AND_COMPANY-CH201110001939

PATIENT
  Age: 51 Year
  Sex: Female

DRUGS (3)
  1. AULIN [Concomitant]
     Indication: ARTHRALGIA
     Dosage: UNK, PRN
     Route: 048
  2. ACETAMINOPHEN [Concomitant]
     Indication: ARTHRALGIA
     Dosage: UNK UNK, PRN
     Route: 048
  3. FORTEO [Suspect]
     Indication: OSTEOPOROSIS
     Dosage: 20 UG, QD
     Route: 058
     Dates: start: 20090101

REACTIONS (3)
  - VITAMIN D DEFICIENCY [None]
  - RENAL CELL CARCINOMA [None]
  - NORMOCHROMIC NORMOCYTIC ANAEMIA [None]
